FAERS Safety Report 18380589 (Version 1)
Quarter: 2020Q4

REPORT INFORMATION
  Report Type: Spontaneous
  Country: QA (occurrence: QA)
  Receive Date: 20201014
  Receipt Date: 20201014
  Transmission Date: 20210114
  Serious: Yes (Hospitalization)
  Sender: FDA-Public Use
  Company Number: QA-SUN PHARMACEUTICAL INDUSTRIES LTD-2020RR-264011

PATIENT
  Age: 40 Year
  Sex: Male

DRUGS (5)
  1. LEVOCETIRIZINE [Suspect]
     Active Substance: LEVOCETIRIZINE
     Indication: RASH MACULAR
     Dosage: UNK
     Route: 065
  2. VANCOMYCIN HYDROCHLORIDE. [Suspect]
     Active Substance: VANCOMYCIN HYDROCHLORIDE
     Indication: RASH MACULAR
     Dosage: UNK
     Route: 065
  3. PIPERACILLIN/TAZOBACTAM [Suspect]
     Active Substance: PIPERACILLIN SODIUM\TAZOBACTAM SODIUM
     Indication: SEPSIS
     Dosage: 4.5 MILLIGRAM, TID
     Route: 042
  4. HYDROCORTISONE. [Suspect]
     Active Substance: HYDROCORTISONE
     Indication: RASH MACULAR
  5. NAPROXEN. [Suspect]
     Active Substance: NAPROXEN
     Indication: BACK PAIN
     Dosage: 500 MILLIGRAM, BID
     Route: 065

REACTIONS (3)
  - Drug reaction with eosinophilia and systemic symptoms [Unknown]
  - Condition aggravated [Unknown]
  - Drug ineffective [Unknown]
